FAERS Safety Report 9066737 (Version 1)
Quarter: 2013Q1

REPORT INFORMATION
  Report Type: Report from Study
  Country: US (occurrence: US)
  Receive Date: 20130131
  Receipt Date: 20130131
  Transmission Date: 20140127
  Serious: No
  Sender: FDA-Public Use
  Company Number: US-ABBOTT-12P-163-1015328-00

PATIENT
  Age: 57 None
  Sex: Male
  Weight: 83.99 kg

DRUGS (1)
  1. HUMIRA [Suspect]
     Indication: ANKYLOSING SPONDYLITIS
     Dates: start: 200810, end: 20121021

REACTIONS (3)
  - Urinary retention [Recovered/Resolved]
  - Cystitis [Recovered/Resolved]
  - Flatulence [Not Recovered/Not Resolved]
